FAERS Safety Report 21022993 (Version 7)
Quarter: 2023Q1

REPORT INFORMATION
  Report Type: Report from Study
  Country: CA (occurrence: CA)
  Receive Date: 20220629
  Receipt Date: 20230309
  Transmission Date: 20230417
  Serious: Yes (Hospitalization, Other)
  Sender: FDA-Public Use
  Company Number: CA-JNJFOC-20220648162

PATIENT
  Age: 15 Year
  Sex: Female
  Weight: 39.5 kg

DRUGS (1)
  1. REMICADE [Suspect]
     Active Substance: INFLIXIMAB
     Indication: Crohn^s disease
     Dosage: LAST DOSE ON 14-APR-2022?HAD 3 INDUCTION DOSES + 1 STAT DOSEK?PHYSICIAN WANTED RESTART IN 1 MONTH W
     Route: 042
     Dates: start: 20211230, end: 20220414

REACTIONS (6)
  - Infection [Recovering/Resolving]
  - Cellulitis [Unknown]
  - Abscess [Unknown]
  - Nosocomial infection [Recovering/Resolving]
  - Drug specific antibody [Unknown]
  - Stenosis [Unknown]

NARRATIVE: CASE EVENT DATE: 20220616
